FAERS Safety Report 11567600 (Version 1)
Quarter: 2015Q3

REPORT INFORMATION
  Report Type: Spontaneous
  Country: US (occurrence: US)
  Receive Date: 20150916
  Receipt Date: 20150916
  Transmission Date: 20151125
  Serious: No
  Sender: FDA-Public Use
  Company Number: US-ELI_LILLY_AND_COMPANY-US200907005843

PATIENT
  Age: 68 Year
  Sex: Female

DRUGS (5)
  1. FORTEO [Suspect]
     Active Substance: TERIPARATIDE
     Dosage: UNK, UNK
     Dates: start: 20090701
  2. CALCIUM [Concomitant]
     Active Substance: CALCIUM
     Dosage: 0.5 D/F, UNK
     Dates: end: 2009
  3. CALCIUM [Concomitant]
     Active Substance: CALCIUM
     Dosage: 1 D/F, UNK
     Dates: start: 2009
  4. MULTIVITAMIN [Concomitant]
     Active Substance: VITAMINS
  5. FOSAMAX [Concomitant]
     Active Substance: ALENDRONATE SODIUM
     Dates: end: 200907

REACTIONS (6)
  - Hypersensitivity [Recovered/Resolved]
  - Abdominal discomfort [Recovering/Resolving]
  - Dizziness [Recovering/Resolving]
  - Headache [Recovering/Resolving]
  - Feeling abnormal [Recovering/Resolving]
  - Muscle spasms [Recovering/Resolving]

NARRATIVE: CASE EVENT DATE: 200907
